FAERS Safety Report 18670038 (Version 5)
Quarter: 2022Q1

REPORT INFORMATION
  Report Type: Spontaneous
  Country: CZ (occurrence: CZ)
  Receive Date: 20201228
  Receipt Date: 20220118
  Transmission Date: 20220423
  Serious: Yes (Other)
  Sender: FDA-Public Use
  Company Number: CZ-MYLANLABS-2020M1101210

PATIENT
  Age: 46 Year
  Sex: Female

DRUGS (9)
  1. METOPROLOL [Interacting]
     Active Substance: METOPROLOL
     Indication: Migraine
     Dosage: 50 MILLIGRAM, QD
     Route: 048
     Dates: start: 201601
  2. METOPROLOL [Interacting]
     Active Substance: METOPROLOL
     Indication: Prophylaxis
     Dosage: 200 MG,  (TITRATED TO A DOSE OF 200 MG)
     Route: 065
     Dates: start: 201101
  3. METOPROLOL [Interacting]
     Active Substance: METOPROLOL
     Indication: Migraine without aura
     Dosage: 50 MILLIGRAM, QD
     Route: 048
     Dates: start: 201601, end: 2016
  4. TOPIRAMATE [Suspect]
     Active Substance: TOPIRAMATE
     Indication: Migraine
     Dosage: 50 MILLIGRAM, QD (25 MG, BID)
     Route: 048
     Dates: start: 2016
  5. TOPIRAMATE [Suspect]
     Active Substance: TOPIRAMATE
     Indication: Migraine prophylaxis
  6. TOPIRAMATE [Suspect]
     Active Substance: TOPIRAMATE
     Indication: Migraine without aura
  7. VENLAFAXINE [Interacting]
     Active Substance: VENLAFAXINE HYDROCHLORIDE
     Indication: Prophylaxis
     Dosage: 150 MILLIGRAM, QD
     Route: 065
  8. VENLAFAXINE [Interacting]
     Active Substance: VENLAFAXINE HYDROCHLORIDE
     Indication: Migraine
     Dosage: 37.5 MILLIGRAM, QD
     Route: 065
  9. VENLAFAXINE [Interacting]
     Active Substance: VENLAFAXINE HYDROCHLORIDE
     Dosage: 75 MG, QD, UP TO DOSE A DOSE OF 75 MG DAILY
     Route: 065

REACTIONS (12)
  - Syncope [Unknown]
  - Sedation [Recovering/Resolving]
  - Confusional state [Recovering/Resolving]
  - Asthenia [Unknown]
  - Medication error [Unknown]
  - Wrong technique in product usage process [Unknown]
  - Incorrect dose administered [Unknown]
  - Presyncope [Recovered/Resolved]
  - Drug interaction [Unknown]
  - Off label use [Unknown]
  - Drug titration error [Unknown]
  - Lethargy [Unknown]

NARRATIVE: CASE EVENT DATE: 20160101
